FAERS Safety Report 5467659-1 (Version None)
Quarter: 2007Q3

REPORT INFORMATION
  Report Type: 
  Country: None (occurrence: None)
  Receive Date: 20070921
  Receipt Date: 20070910
  Transmission Date: 20080115
  Serious: Yes (Hospitalization)
  Sender: FDA-Public Use
  Company Number: GXKR2007JP07867

PATIENT
  Age: 14 Year
  Sex: Male

DRUGS (10)
  1. PREDNISOLONE [Suspect]
     Indication: ACUTE LYMPHOCYTIC LEUKAEMIA
     Dosage: 2.52 G/M, UNKNOWN, 1.8 G/M, 1 MG/KG, QD
  2. TACROLIMUS [Suspect]
     Indication: PROPHYLAXIS AGAINST GRAFT VERSUS HOST DISEASE
     Dosage: 0.03 MG/M2, QD, INFUSION, 4 MG, QD
  3. VINCRISTINE [Concomitant]
  4. DANORUBICIN (DAUNORUBICIN) [Concomitant]
  5. CYCLOPHOSPHAMIDE [Concomitant]
  6. L-ASPARAGINASE (ASPARAGINASE) [Concomitant]
  7. CYTARABINE [Concomitant]
  8. ETOPOSIDE [Concomitant]
  9. METHOTREXATE [Concomitant]
  10. MERCAPTOPURINE [Concomitant]

REACTIONS (9)
  - ACUTE GRAFT VERSUS HOST DISEASE IN SKIN [None]
  - BLOOD CHOLESTEROL INCREASED [None]
  - BLOOD TRIGLYCERIDES INCREASED [None]
  - CHRONIC GRAFT VERSUS HOST DISEASE [None]
  - CRYPTOGENIC ORGANISING PNEUMONIA [None]
  - DIABETES MELLITUS [None]
  - DIABETIC KETOACIDOSIS [None]
  - MUCOSAL INFLAMMATION [None]
  - POST PROCEDURAL COMPLICATION [None]
